FAERS Safety Report 4505463-9 (Version None)
Quarter: 2004Q4

REPORT INFORMATION
  Report Type: 
  Country: None (occurrence: None)
  Receive Date: 20041118
  Receipt Date: 20041118
  Transmission Date: 20050328
  Serious: Yes (Other)
  Sender: FDA-Public Use
  Company Number: None

PATIENT
  Age: 76 Year
  Sex: Male
  Weight: 71 kg

DRUGS (9)
  1. ARIPIRAZOLE [Suspect]
     Indication: SCHIZOPHRENIA
     Dosage: 10MG  DAILY ORAL
     Route: 048
     Dates: start: 20041005, end: 20041018
  2. LASIX [Concomitant]
  3. LISINOPRIL [Concomitant]
  4. DIGOXIN [Concomitant]
  5. ECOTRIN [Concomitant]
  6. IMDUR [Concomitant]
  7. PROTONIX [Concomitant]
  8. CATAPRES-TTS-1 [Concomitant]
  9. GLIPIZIDE [Concomitant]

REACTIONS (4)
  - BLOOD GLUCOSE FLUCTUATION [None]
  - CHEST PAIN [None]
  - DIABETES MELLITUS INADEQUATE CONTROL [None]
  - HEART RATE INCREASED [None]
